FAERS Safety Report 17809588 (Version 1)
Quarter: 2020Q2

REPORT INFORMATION
  Report Type: Spontaneous
  Country: US (occurrence: US)
  Receive Date: 20200520
  Receipt Date: 20200520
  Transmission Date: 20200714
  Serious: No
  Sender: FDA-Public Use
  Company Number: US-IBSA PHARMA-TIR-2020-0033

PATIENT
  Sex: Female

DRUGS (5)
  1. LEVOXYL [Concomitant]
     Active Substance: LEVOTHYROXINE SODIUM
     Indication: PRODUCT USED FOR UNKNOWN INDICATION
     Route: 048
  2. TIROSINT [Suspect]
     Active Substance: LEVOTHYROXINE SODIUM
     Indication: PRODUCT USED FOR UNKNOWN INDICATION
     Dosage: 100MCG 3 TIMES WEEKLY ALTERNATING WITH 112MCG ON THE OTHER 4 DAYS
     Route: 048
  3. TIROSINT [Suspect]
     Active Substance: LEVOTHYROXINE SODIUM
     Dosage: 100MCG 3 TIMES WEEKLY ALTERNATING WITH 112MCG ON THE OTHER 4 DAYS
     Route: 048
  4. TIROSINT [Suspect]
     Active Substance: LEVOTHYROXINE SODIUM
     Indication: PRODUCT USED FOR UNKNOWN INDICATION
     Dosage: 100MCG 3 TIMES WEEKLY ALTERNATING WITH 112MCG ON THE OTHER 4 DAYS
     Route: 048
     Dates: start: 2016
  5. TIROSINT [Suspect]
     Active Substance: LEVOTHYROXINE SODIUM
     Dosage: 100MCG 3 TIMES WEEKLY ALTERNATING WITH 112MCG ON THE OTHER 4 DAYS
     Route: 048

REACTIONS (4)
  - Thyroid function test abnormal [Unknown]
  - Feeling abnormal [Unknown]
  - Insomnia [Unknown]
  - Restlessness [Unknown]
